FAERS Safety Report 10361086 (Version 1)
Quarter: 2014Q3

REPORT INFORMATION
  Report Type: Spontaneous
  Country: RO (occurrence: RO)
  Receive Date: 20140804
  Receipt Date: 20140804
  Transmission Date: 20150326
  Serious: Yes (Death, Other)
  Sender: FDA-Public Use
  Company Number: PHHY2014RO093597

PATIENT
  Age: 29 Year
  Sex: Male

DRUGS (1)
  1. METHADONE [Suspect]
     Active Substance: METHADONE HYDROCHLORIDE
     Route: 042

REACTIONS (6)
  - Cardiopulmonary failure [Fatal]
  - Acute pulmonary oedema [Unknown]
  - Pulmonary hypertension [Unknown]
  - Hepatitis C [Unknown]
  - Toxicity to various agents [Unknown]
  - Wound [Unknown]
